FAERS Safety Report 12977678 (Version 1)
Quarter: 2016Q4

REPORT INFORMATION
  Report Type: Report from Study
  Country: DE (occurrence: DE)
  Receive Date: 20161128
  Receipt Date: 20161128
  Transmission Date: 20170207
  Serious: Yes (Hospitalization)
  Sender: FDA-Public Use
  Company Number: DE-ROCHE-1738618

PATIENT
  Age: 60 Year
  Sex: Female
  Weight: 63.5 kg

DRUGS (19)
  1. OTRIVEN [Concomitant]
     Active Substance: XYLOMETAZOLINE HYDROCHLORIDE
     Indication: NASOPHARYNGITIS
     Route: 065
     Dates: start: 20160216, end: 20160329
  2. DEKRISTOL [Concomitant]
     Active Substance: CHOLECALCIFEROL
     Indication: URINARY INCONTINENCE
     Route: 065
     Dates: start: 20160609
  3. TRASTUZUMAB [Suspect]
     Active Substance: TRASTUZUMAB
     Dosage: MAINTAINENCE DOSE (6 MG/KG)?DATE OF LAST DOSE PRIOR TO BRONCHITIS: 08/MAR/2016?DATE OF LAST DOSE PRI
     Route: 042
     Dates: start: 20150805
  4. RAMIPRIL. [Concomitant]
     Active Substance: RAMIPRIL
     Indication: HYPERTENSION
     Route: 065
     Dates: start: 20150320
  5. DOCETAXEL. [Suspect]
     Active Substance: DOCETAXEL
     Indication: HER-2 POSITIVE BREAST CANCER
     Dosage: DATE OF LAST DOSE PRIOR TO SAE: 22/SEP/2015
     Route: 042
     Dates: start: 20150714
  6. IMODIUM AKUT [Concomitant]
     Active Substance: LOPERAMIDE
     Indication: DIARRHOEA
     Route: 065
     Dates: start: 20160202, end: 20160329
  7. EPIRUBICIN [Suspect]
     Active Substance: EPIRUBICIN
     Indication: HER-2 POSITIVE BREAST CANCER
     Route: 042
     Dates: start: 20150421
  8. CYCLOPHOSPHAMIDE. [Suspect]
     Active Substance: CYCLOPHOSPHAMIDE
     Indication: HER-2 POSITIVE BREAST CANCER
     Route: 042
     Dates: start: 20150421
  9. PANTOZOL [Concomitant]
     Active Substance: PANTOPRAZOLE SODIUM
     Indication: GASTRITIS PROPHYLAXIS
     Route: 065
     Dates: start: 20151209
  10. LEMOCIN [Concomitant]
     Indication: NASOPHARYNGITIS
     Route: 065
     Dates: start: 20160216, end: 20160403
  11. DERMATOP [Concomitant]
     Active Substance: PREDNICARBATE
     Indication: RASH
     Route: 065
     Dates: start: 20160308
  12. NASIC [Concomitant]
     Active Substance: DEXPANTHENOL\XYLOMETAZOLINE HYDROCHLORIDE
     Indication: NASOPHARYNGITIS
     Route: 065
     Dates: start: 20160407, end: 20160519
  13. PERTUZUMAB [Suspect]
     Active Substance: PERTUZUMAB
     Indication: HER-2 POSITIVE BREAST CANCER
     Dosage: LOADING DOSE
     Route: 042
     Dates: start: 20150714, end: 20150714
  14. PERTUZUMAB [Suspect]
     Active Substance: PERTUZUMAB
     Dosage: MAINTAINENCE DOSE?DATE OF LAST DOSE PRIOR TO BRONCHITIS: 08/MAR/2016?DATE OF LAST DOSE PRIOR TO ENTE
     Route: 042
     Dates: start: 20150805
  15. SINUPRET [Concomitant]
     Active Substance: HERBALS
     Indication: NASOPHARYNGITIS
     Route: 065
     Dates: start: 20160216, end: 20160329
  16. BRONCHICUM MONO CODEIN [Concomitant]
     Indication: NASOPHARYNGITIS
     Route: 065
     Dates: start: 20160216, end: 20160406
  17. PARACETAMOL [Concomitant]
     Active Substance: ACETAMINOPHEN
     Indication: NASOPHARYNGITIS
     Route: 065
     Dates: start: 20160330, end: 20160401
  18. TRASTUZUMAB [Suspect]
     Active Substance: TRASTUZUMAB
     Indication: HER-2 POSITIVE BREAST CANCER
     Dosage: LOADING DOSE
     Route: 042
     Dates: start: 20150714, end: 20150714
  19. AMLODIPIN [Concomitant]
     Active Substance: AMLODIPINE BESYLATE
     Indication: HYPERTENSION
     Route: 065
     Dates: start: 20151209

REACTIONS (2)
  - Bronchitis [Recovered/Resolved]
  - Enterocolitis [Recovered/Resolved]

NARRATIVE: CASE EVENT DATE: 20160330
